FAERS Safety Report 7298257-5 (Version None)
Quarter: 2011Q1

REPORT INFORMATION
  Report Type: 
  Country: None (occurrence: None)
  Receive Date: 20110217
  Receipt Date: 20100318
  Transmission Date: 20110831
  Serious: No
  Sender: FDA-Public Use
  Company Number: US-PFIZER INC-2010036028

PATIENT
  Sex: Male
  Weight: 78.9 kg

DRUGS (1)
  1. XALATAN [Suspect]
     Indication: GLAUCOMA
     Dosage: 1 GTT, 1X/DAY
     Route: 047
     Dates: start: 20080101

REACTIONS (4)
  - DYSPHONIA [None]
  - HEADACHE [None]
  - IRRITABILITY [None]
  - EMOTIONAL DISORDER [None]
